FAERS Safety Report 4806673-3 (Version None)
Quarter: 2005Q4

REPORT INFORMATION
  Report Type: 
  Country: None (occurrence: None)
  Receive Date: 20051021
  Receipt Date: 20051012
  Transmission Date: 20060501
  Serious: Yes (Hospitalization)
  Sender: FDA-Public Use
  Company Number: US-ABBOTT-05P-163-0314417-00

PATIENT
  Sex: Female
  Weight: 103 kg

DRUGS (2)
  1. HUMIRA [Suspect]
     Indication: RHEUMATOID ARTHRITIS
     Route: 058
     Dates: start: 20030501, end: 20050101
  2. HUMIRA [Suspect]
     Route: 058
     Dates: start: 20050401

REACTIONS (7)
  - ABDOMINAL HERNIA [None]
  - ADHESION [None]
  - DRUG INEFFECTIVE [None]
  - FALL [None]
  - RHEUMATOID ARTHRITIS [None]
  - SKIN LACERATION [None]
  - WOUND INFECTION [None]
